FAERS Safety Report 7486238-8 (Version None)
Quarter: 2011Q2

REPORT INFORMATION
  Report Type: 
  Country: None (occurrence: None)
  Receive Date: 20110517
  Receipt Date: 20110222
  Transmission Date: 20111010
  Serious: No
  Sender: FDA-Public Use
  Company Number: A0914880A

PATIENT
  Age: 65 Year
  Sex: Male

DRUGS (3)
  1. VOTRIENT [Suspect]
     Dosage: 4TAB PER DAY
     Route: 048
     Dates: start: 20100904
  2. BLOOD PRESSURE MEDICATION [Concomitant]
     Indication: HYPERTENSION
  3. LIPITOR [Concomitant]

REACTIONS (3)
  - SKIN DISCOLOURATION [None]
  - HAIR DISORDER [None]
  - BLOOD PRESSURE INCREASED [None]
